FAERS Safety Report 8494050-6 (Version None)
Quarter: 2012Q3

REPORT INFORMATION
  Report Type: 
  Country: None (occurrence: None)
  Receive Date: 20120709
  Receipt Date: 20120629
  Transmission Date: 20120928
  Serious: No
  Sender: FDA-Public Use
  Company Number: US-BIOGENIDEC-2012BI023737

PATIENT
  Sex: Male

DRUGS (5)
  1. AVONEX [Suspect]
     Route: 030
     Dates: start: 20010101, end: 20120501
  2. AVONEX [Suspect]
     Route: 030
     Dates: end: 20010101
  3. IBUPROFEN (ADVIL) [Concomitant]
     Indication: PREMEDICATION
  4. AVONEX [Suspect]
     Indication: MULTIPLE SCLEROSIS
     Route: 030
     Dates: start: 19980101, end: 19990101
  5. AVONEX [Suspect]
     Route: 030
     Dates: start: 20120601

REACTIONS (3)
  - CHILLS [None]
  - TREMOR [None]
  - INFLUENZA LIKE ILLNESS [None]
